FAERS Safety Report 22086552 (Version 1)
Quarter: 2023Q1

REPORT INFORMATION
  Report Type: Report from Study
  Country: BR (occurrence: BR)
  Receive Date: 20230312
  Receipt Date: 20230312
  Transmission Date: 20230418
  Serious: Yes (Other)
  Sender: FDA-Public Use
  Company Number: BR-002147023-NVSC2023BR053046

PATIENT
  Sex: Female

DRUGS (1)
  1. DIOVAN [Suspect]
     Active Substance: VALSARTAN
     Indication: Product used for unknown indication
     Dosage: 160 MG, QD (28 TABLETS,USING 1  TABLET IN THE MORNING)
     Route: 065

REACTIONS (8)
  - Deafness [Not Recovered/Not Resolved]
  - Dizziness [Not Recovered/Not Resolved]
  - Hypoacusis [Unknown]
  - Hypertension [Unknown]
  - Visual impairment [Unknown]
  - Blood pressure decreased [Unknown]
  - Drug ineffective [Unknown]
  - Product complaint [Unknown]
